FAERS Safety Report 8960547 (Version 1)
Quarter: 2012Q4

REPORT INFORMATION
  Report Type: Spontaneous
  Country: US (occurrence: None)
  Receive Date: 20121207
  Receipt Date: 20121207
  Transmission Date: 20130627
  Serious: Yes (Hospitalization, Other)
  Sender: FDA-Public Use
  Company Number: None

PATIENT
  Age: 53 Month
  Sex: Female
  Weight: 78.93 kg

DRUGS (1)
  1. SIMVASTATIN [Suspect]
     Indication: HIGH CHOLESTEROL
     Dates: start: 20120601, end: 20121205

REACTIONS (4)
  - Muscle spasms [None]
  - Renal pain [None]
  - Bladder pain [None]
  - Muscle enzyme increased [None]
